FAERS Safety Report 23498812 (Version 2)
Quarter: 2024Q1

REPORT INFORMATION
  Report Type: Spontaneous
  Country: CN (occurrence: CN)
  Receive Date: 20240208
  Receipt Date: 20240210
  Transmission Date: 20240410
  Serious: Yes (Life-Threatening, Other)
  Sender: FDA-Public Use
  Company Number: CN-ABBVIE-5628028

PATIENT
  Age: 28 Year
  Sex: Female
  Weight: 62 kg

DRUGS (1)
  1. SEVOFLURANE [Suspect]
     Active Substance: SEVOFLURANE
     Indication: Anaesthesia procedure
     Route: 042
     Dates: start: 20231214, end: 20231214

REACTIONS (6)
  - Respiratory tract haemorrhage [Recovering/Resolving]
  - Investigation abnormal [Recovering/Resolving]
  - Pulmonary arteriopathy [Unknown]
  - Pneumoperitoneum [Unknown]
  - Sputum discoloured [Unknown]
  - Productive cough [Unknown]

NARRATIVE: CASE EVENT DATE: 20231214
